FAERS Safety Report 6917610-X (Version None)
Quarter: 2010Q3

REPORT INFORMATION
  Report Type: 
  Country: None (occurrence: None)
  Receive Date: 20100810
  Receipt Date: 20100802
  Transmission Date: 20110219
  Serious: Yes (Hospitalization, Disabling, Other)
  Sender: FDA-Public Use
  Company Number: GB-ELI_LILLY_AND_COMPANY-GB201008001042

PATIENT
  Sex: Female

DRUGS (4)
  1. FORTEO [Suspect]
     Indication: OSTEOPOROSIS
     Dosage: 20 UG, DAILY (1/D)
     Route: 058
  2. FLUDROCORTISONE [Concomitant]
     Dosage: 200 UG, DAILY (1/D)
     Route: 065
  3. IBUPROFEN [Concomitant]
     Dosage: 400 MG, 3/D
     Route: 065
  4. MIDODRINE HYDROCHLORIDE [Concomitant]
     Dosage: 10 MG, 3/D
     Route: 065

REACTIONS (2)
  - FALL [None]
  - ORTHOSTATIC HYPOTENSION [None]
